FAERS Safety Report 25955835 (Version 2)
Quarter: 2025Q4

REPORT INFORMATION
  Report Type: Report from Study
  Country: CA (occurrence: CA)
  Receive Date: 20251024
  Receipt Date: 20251224
  Transmission Date: 20260118
  Serious: Yes (Other)
  Sender: BIOCON
  Company Number: CA-MYLANLABS-2023M1029872

PATIENT

DRUGS (1)
  1. HULIO [Suspect]
     Active Substance: ADALIMUMAB-FKJP
     Indication: Hidradenitis
     Dosage: 40 MILLIGRAM, QW
     Route: 058
     Dates: start: 20211005

REACTIONS (14)
  - Surgery [Unknown]
  - Gastrointestinal disorder [Unknown]
  - Condition aggravated [Unknown]
  - Eczema [Unknown]
  - Heavy menstrual bleeding [Unknown]
  - Dry skin [Unknown]
  - Scar [Unknown]
  - Skin lesion [Unknown]
  - Hidradenitis [Unknown]
  - Cyst drainage [Unknown]
  - Nodule [Unknown]
  - Therapy interrupted [Unknown]
  - Anxiety [Unknown]
  - Off label use [Unknown]

NARRATIVE: CASE EVENT DATE: 20240712
